FAERS Safety Report 8349459-8 (Version None)
Quarter: 2012Q2

REPORT INFORMATION
  Report Type: 
  Country: None (occurrence: None)
  Receive Date: 20120510
  Receipt Date: 20120429
  Transmission Date: 20120825
  Serious: No
  Sender: FDA-Public Use
  Company Number: US-BAYER-2012-044806

PATIENT
  Sex: Female

DRUGS (3)
  1. NAPROXEN SODIUM [Suspect]
     Indication: PRODUCT USED FOR UNKNOWN INDICATION
     Route: 048
  2. VITAMIN TAB [Suspect]
  3. COUGH AND COLD PREPARATIONS [Suspect]

REACTIONS (1)
  - EUPHORIC MOOD [None]
